FAERS Safety Report 24878401 (Version 2)
Quarter: 2025Q1

REPORT INFORMATION
  Report Type: Report from Study
  Country: US (occurrence: US)
  Receive Date: 20250123
  Receipt Date: 20250306
  Transmission Date: 20250409
  Serious: Yes (Disabling)
  Sender: AMGEN
  Company Number: US-AMGEN-USASP2025010096

PATIENT
  Age: 63 Year
  Sex: Female

DRUGS (3)
  1. CORLANOR [Suspect]
     Active Substance: IVABRADINE HYDROCHLORIDE
     Indication: Cardiac failure
     Route: 048
     Dates: start: 2020
  2. CORLANOR [Suspect]
     Active Substance: IVABRADINE HYDROCHLORIDE
     Dosage: UNK UNK, BID (SHE TAKES HALF OF THE PILL INSTEAD OF A WHOLE PILL 2 TIMES A DAY)
     Route: 048
  3. IVABRADINE [Suspect]
     Active Substance: IVABRADINE
     Indication: Cardiac failure
     Route: 065

REACTIONS (7)
  - Myocarditis [Unknown]
  - Hypersensitivity [Unknown]
  - Adverse drug reaction [Unknown]
  - Pruritus [Unknown]
  - Cardiac disorder [Recovering/Resolving]
  - Crying [Unknown]
  - Intentional product use issue [Unknown]

NARRATIVE: CASE EVENT DATE: 20240101
